FAERS Safety Report 13377392 (Version 1)
Quarter: 2017Q1

REPORT INFORMATION
  Report Type: Spontaneous
  Country: US (occurrence: US)
  Receive Date: 20170328
  Receipt Date: 20170328
  Transmission Date: 20170429
  Serious: No
  Sender: FDA-Public Use
  Company Number: US-GLAXOSMITHKLINE-US2017039802

PATIENT
  Age: 59 Year
  Sex: Female

DRUGS (2)
  1. ALLI [Suspect]
     Active Substance: ORLISTAT
     Indication: PRODUCT USED FOR UNKNOWN INDICATION
     Dosage: UNK (HE TOOK TWO PILLS WITH EVERY MEAL)
     Dates: start: 20170312
  2. ALLI [Suspect]
     Active Substance: ORLISTAT
     Dosage: UNK (SHE WAS HAVING ONE ONCE A DAY BEFORE)

REACTIONS (2)
  - Bowel movement irregularity [Unknown]
  - Extra dose administered [Unknown]
